FAERS Safety Report 10539281 (Version 3)
Quarter: 2015Q1

REPORT INFORMATION
  Report Type: Report from Study
  Country: US (occurrence: US)
  Receive Date: 20141023
  Receipt Date: 20150129
  Transmission Date: 20150720
  Serious: Yes (Hospitalization)
  Sender: FDA-Public Use
  Company Number: US-MYLANLABS-2014SP004941

PATIENT

DRUGS (20)
  1. POLYETHYLENE GLYCOL [Concomitant]
     Active Substance: POLYETHYLENE GLYCOLS
     Indication: CONSTIPATION
     Dosage: 17 G, BID, PRN
     Route: 048
     Dates: start: 20140815
  2. BISACODYL. [Concomitant]
     Active Substance: BISACODYL
     Indication: CONSTIPATION
     Dosage: 10 MG, HS, PRN
     Route: 048
     Dates: start: 20140816
  3. MITOXANTRONE [Suspect]
     Active Substance: MITOXANTRONE HYDROCHLORIDE
     Indication: ACUTE LYMPHOCYTIC LEUKAEMIA
     Dosage: 20 MG, DAYS 1-3, 15-20 DAYCYCLE
     Route: 042
     Dates: start: 20140724, end: 20140731
  4. CALCIUM CARBONATE. [Concomitant]
     Active Substance: CALCIUM CARBONATE
     Indication: DYSPEPSIA
     Dosage: 500 MG, TID, PRN
     Route: 048
     Dates: start: 20140808
  5. PIPERACILLIN SODIUM/TAZOBACTAM [Suspect]
     Active Substance: PIPERACILLIN SODIUM\TAZOBACTAM SODIUM
     Indication: BACTERAEMIA
     Dosage: 3.375 G, Q6H
     Route: 042
     Dates: start: 20140808, end: 20140826
  6. SIMETHICONE [Concomitant]
     Active Substance: DIMETHICONE\SILICON DIOXIDE\SIMETHICONE
     Indication: FLATULENCE
     Dosage: 80 MG, TID, PRN
     Route: 048
     Dates: start: 20140805
  7. CYTARABINE. [Suspect]
     Active Substance: CYTARABINE
     Indication: ACUTE LYMPHOCYTIC LEUKAEMIA
     Dosage: 340 MG, DAYS 1-7 CONTINUOUS INFUSTION, 15-20 DAY CYCLE
     Route: 042
     Dates: start: 20140724, end: 20140731
  8. ACYCLOVIR. [Concomitant]
     Active Substance: ACYCLOVIR
     Indication: NEUTROPENIA
     Dosage: 800 MG, BID
     Route: 048
     Dates: start: 20140717
  9. FLUCONAZOLE. [Concomitant]
     Active Substance: FLUCONAZOLE
     Indication: NEUTROPENIA
     Dosage: 200 MG, QD
     Route: 048
     Dates: start: 20140717
  10. INSULIN GLARGINE [Concomitant]
     Active Substance: INSULIN GLARGINE
     Indication: DIABETES MELLITUS
     Dosage: 20 IU, HS
     Route: 058
     Dates: start: 201301
  11. INSULIN LISPRO [Concomitant]
     Active Substance: INSULIN LISPRO
     Indication: DIABETES MELLITUS
     Dosage: 8 IU, TID, BEFORE MEALS
     Route: 058
     Dates: start: 201401
  12. OXYCODONE [Concomitant]
     Active Substance: OXYCODONE
     Indication: BACK PAIN
     Dosage: 10 MG, Q3H
     Route: 048
     Dates: start: 20140718
  13. SULFAMETHOXAZOLE AND TRIMETHOPRIM [Concomitant]
     Active Substance: SULFAMETHOXAZOLE\TRIMETHOPRIM
     Indication: BACTERAEMIA
     Dosage: UNK, BID
     Route: 048
     Dates: start: 20140818
  14. ONDANSETRON [Concomitant]
     Active Substance: ONDANSETRON
     Indication: NAUSEA
     Dosage: 8 MG, Q2H
     Route: 048
     Dates: start: 20140803
  15. DOCUSATE SODIUM. [Concomitant]
     Active Substance: DOCUSATE SODIUM
     Indication: CONSTIPATION
     Dosage: 200 MG, BID
     Route: 048
     Dates: start: 20140717
  16. LIDOCAINE. [Concomitant]
     Active Substance: LIDOCAINE
     Indication: ARTHRALGIA
     Dosage: UNK, BID
     Route: 062
     Dates: start: 20140809
  17. GABAPENTIN. [Concomitant]
     Active Substance: GABAPENTIN
     Indication: ARTHRALGIA
     Dosage: 600 MG, Q8H
     Route: 048
     Dates: start: 20140809
  18. SENNA                              /00571902/ [Concomitant]
     Indication: CONSTIPATION
     Dosage: 17.2 MG, BID
     Route: 048
     Dates: start: 20140815
  19. MAGNESIUM HYDROXIDE. [Concomitant]
     Active Substance: MAGNESIUM HYDROXIDE
     Indication: CONSTIPATION
     Dosage: 2.4 G, HS, PRN
     Route: 048
     Dates: start: 20140815
  20. PROCHLORPERAZINE. [Concomitant]
     Active Substance: PROCHLORPERAZINE
     Indication: NAUSEA
     Dosage: 10 MG, Q6H, PRN
     Route: 048
     Dates: start: 20140803

REACTIONS (5)
  - Asthenia [Unknown]
  - Leuconostoc infection [Unknown]
  - Pneumonia fungal [Recovered/Resolved]
  - Febrile neutropenia [Recovering/Resolving]
  - Escherichia bacteraemia [Unknown]

NARRATIVE: CASE EVENT DATE: 20140819
